FAERS Safety Report 5787447-6 (Version None)
Quarter: 2008Q2

REPORT INFORMATION
  Report Type: 
  Country: None (occurrence: None)
  Receive Date: 20080625
  Receipt Date: 20080618
  Transmission Date: 20081010
  Serious: Yes (Death, Life-Threatening, Hospitalization)
  Sender: FDA-Public Use
  Company Number: US-BRISTOL-MYERS SQUIBB COMPANY-13901608

PATIENT
  Age: 74 Year
  Sex: Male
  Weight: 63 kg

DRUGS (22)
  1. CETUXIMAB [Suspect]
     Indication: COLORECTAL CANCER METASTATIC
     Dosage: DAY 1, DAY 8, DAY 15, DAY 22 OF EACH CYCLE. IVPB STARTED ON 21MAR07
     Route: 040
     Dates: start: 20070424, end: 20070424
  2. LEUCOVORIN CALCIUM [Suspect]
     Indication: COLORECTAL CANCER METASTATIC
     Dosage: DAY 1 , DAY 15 OF EACH CYCLE. STARTED ON 21MAR07.
     Route: 040
     Dates: start: 20070827, end: 20070827
  3. BEVACIZUMAB [Suspect]
     Indication: COLORECTAL CANCER METASTATIC
     Dosage: DAY 1, DAY 15 OF EACH CYCLE.STARTED ON 21MAR07
     Route: 040
     Dates: start: 20070827, end: 20070827
  4. FLUOROURACIL [Suspect]
     Indication: COLORECTAL CANCER METASTATIC
     Dosage: 1200MG/M2 WAS ALSO TAKEN WITH FREQUENCY DAY 1, DAY 15 OF EACH CYCLE.STARTED ON 21MAR07
     Route: 040
     Dates: start: 20070829, end: 20070829
  5. ATIVAN [Concomitant]
     Indication: ANXIETY
     Route: 048
     Dates: start: 20070321, end: 20070930
  6. REMERON [Concomitant]
     Indication: DEPRESSION
     Route: 048
     Dates: start: 20070529, end: 20070930
  7. IMODIUM [Concomitant]
     Route: 048
     Dates: start: 20070518
  8. COMPAZINE [Concomitant]
     Indication: ANTIEMETIC SUPPORTIVE CARE
     Route: 048
     Dates: start: 20070321, end: 20070930
  9. AMBIEN [Concomitant]
     Indication: INSOMNIA
     Dosage: TAB/QHS PRN
     Route: 048
     Dates: start: 20070718, end: 20070930
  10. ALDACTONE [Concomitant]
     Indication: DIURETIC THERAPY
     Route: 048
     Dates: start: 20070404, end: 20070930
  11. KLOR-CON [Concomitant]
     Indication: MINERAL SUPPLEMENTATION
     Dosage: TAB
     Route: 048
     Dates: start: 20070712, end: 20070930
  12. MEGACE [Concomitant]
     Route: 048
     Dates: start: 20070411
  13. ENULOSE [Concomitant]
     Route: 048
     Dates: start: 20070822
  14. SODIUM PHOSPHATES [Concomitant]
     Dosage: ROUTE-PR
     Dates: start: 20070821
  15. MAG-OX [Concomitant]
     Indication: MINERAL SUPPLEMENTATION
     Route: 048
     Dates: start: 20070808, end: 20070930
  16. LORTAB [Concomitant]
     Indication: PAIN PROPHYLAXIS
     Route: 048
     Dates: start: 20070321
  17. TOBRADEX [Concomitant]
     Indication: LACRIMATION INCREASED
     Dosage: ROUTE-OP
     Route: 047
     Dates: start: 20070716, end: 20070930
  18. CITRO-MAG [Concomitant]
     Route: 048
     Dates: start: 20070820
  19. HYDROCODONE [Concomitant]
     Indication: PAIN PROPHYLAXIS
     Dosage: 500MG Q46H PO WAS ALSO TAKEN.
     Route: 048
     Dates: start: 20070321, end: 20070930
  20. KYTRIL [Concomitant]
     Dates: start: 20070321, end: 20070904
  21. BENADRYL [Concomitant]
     Dates: start: 20070321, end: 20070904
  22. KEFLEX [Concomitant]
     Indication: PROPHYLAXIS
     Dates: start: 20070808, end: 20070818

REACTIONS (1)
  - COLITIS ISCHAEMIC [None]
